FAERS Safety Report 16726343 (Version 1)
Quarter: 2019Q3

REPORT INFORMATION
  Report Type: Spontaneous
  Country: CN (occurrence: TW)
  Receive Date: 20190821
  Receipt Date: 20190821
  Transmission Date: 20191005
  Serious: Yes (Other)
  Sender: FDA-Public Use
  Company Number: CN-VIIV HEALTHCARE LIMITED-TW2019APC149524

PATIENT

DRUGS (2)
  1. ABACAVIR. [Suspect]
     Active Substance: ABACAVIR
     Indication: PROPHYLAXIS AGAINST HIV INFECTION
     Dosage: UNK
  2. TRIUMEQ [Suspect]
     Active Substance: ABACAVIR SULFATE\DOLUTEGRAVIR SODIUM\LAMIVUDINE
     Indication: PROPHYLAXIS AGAINST HIV INFECTION
     Dosage: UNK

REACTIONS (9)
  - Pyrexia [Recovered/Resolved]
  - Product use in unapproved indication [Unknown]
  - Alanine aminotransferase increased [Unknown]
  - Stevens-Johnson syndrome [Unknown]
  - Drug-induced liver injury [Unknown]
  - Product prescribing issue [Unknown]
  - Hypersensitivity [Unknown]
  - Abdominal distension [Unknown]
  - Pharyngeal ulceration [Unknown]
